FAERS Safety Report 7283600-3 (Version None)
Quarter: 2011Q1

REPORT INFORMATION
  Report Type: 
  Country: None (occurrence: None)
  Receive Date: 20110209
  Receipt Date: 20110203
  Transmission Date: 20110831
  Serious: Yes (Death)
  Sender: FDA-Public Use
  Company Number: A0912539A

PATIENT
  Age: 65 Year
  Sex: Male

DRUGS (1)
  1. HYCAMTIN [Suspect]
     Dosage: 5CAP PER DAY
     Route: 048
     Dates: start: 20110127

REACTIONS (1)
  - PULMONARY THROMBOSIS [None]
